FAERS Safety Report 21467709 (Version 2)
Quarter: 2023Q1

REPORT INFORMATION
  Report Type: Spontaneous
  Country: US (occurrence: US)
  Receive Date: 20221017
  Receipt Date: 20230201
  Transmission Date: 20230417
  Serious: Yes (Hospitalization)
  Sender: FDA-Public Use
  Company Number: US-ALLERGAN-2143577US

PATIENT
  Sex: Female

DRUGS (1)
  1. LINZESS [Suspect]
     Active Substance: LINACLOTIDE
     Indication: Constipation
     Dosage: UNK
     Route: 048
     Dates: start: 2012

REACTIONS (7)
  - Muscle spasms [Unknown]
  - Pain [Unknown]
  - Neuropathy peripheral [Unknown]
  - Nerve injury [Unknown]
  - Fall [Recovered/Resolved]
  - Peroneal nerve palsy [Unknown]
  - Drug ineffective [Unknown]

NARRATIVE: CASE EVENT DATE: 20160101
